FAERS Safety Report 5810520-0 (Version None)
Quarter: 2008Q3

REPORT INFORMATION
  Report Type: 
  Country: None (occurrence: None)
  Receive Date: 20080709
  Receipt Date: 20080623
  Transmission Date: 20090109
  Serious: Yes (Hospitalization)
  Sender: FDA-Public Use
  Company Number: 08-001046

PATIENT
  Age: 76 Year
  Sex: Male

DRUGS (4)
  1. DOVONEX [Suspect]
     Dosage: TOPICAL
     Route: 061
  2. CITALOPRAM HYDROBROMIDE [Concomitant]
  3. MESALAMINE [Concomitant]
  4. WARFARIN SODIUM [Concomitant]

REACTIONS (1)
  - MYOCARDIAL INFARCTION [None]
